FAERS Safety Report 20688348 (Version 1)
Quarter: 2022Q2

REPORT INFORMATION
  Report Type: Spontaneous
  Country: FR (occurrence: FR)
  Receive Date: 20220408
  Receipt Date: 20220408
  Transmission Date: 20220720
  Serious: Yes (Other)
  Sender: FDA-Public Use
  Company Number: None

PATIENT
  Age: 29 Year
  Sex: Male
  Weight: 78 kg

DRUGS (23)
  1. CISPLATIN [Suspect]
     Active Substance: CISPLATIN
     Indication: Hodgkin^s disease
     Dosage: UNIT DOSE: 150 MG, FREQUENCY TIME 1 TOTAL
     Route: 041
     Dates: start: 20210812
  2. CISPLATIN [Suspect]
     Active Substance: CISPLATIN
     Dosage: UNIT DOSE: 200 MG, FREQUENCY TIME 1 TOTAL
     Route: 041
     Dates: start: 20210722
  3. CISPLATIN [Suspect]
     Active Substance: CISPLATIN
     Dosage: UNIT DOSE: 195 MG, FREQUENCY TIME 1 TOTAL
     Route: 041
     Dates: start: 20210630
  4. ADCETRIS [Suspect]
     Active Substance: BRENTUXIMAB VEDOTIN
     Indication: Hodgkin^s disease
     Dosage: UNIT DOSE: 135 MG, FREQUENCY TIME 1 TOTAL
     Route: 041
     Dates: start: 20210903
  5. ADCETRIS [Suspect]
     Active Substance: BRENTUXIMAB VEDOTIN
     Dosage: UNIT DOSE: 140 MG, FREQUENCY TIME 1 TOTAL
     Route: 041
     Dates: start: 20210812
  6. ADCETRIS [Suspect]
     Active Substance: BRENTUXIMAB VEDOTIN
     Dosage: UNIT DOSE: 140 MG, FREQUENCY TIME 1 TOTAL
     Route: 041
     Dates: start: 20210722
  7. ADCETRIS [Suspect]
     Active Substance: BRENTUXIMAB VEDOTIN
     Dosage: UNIT DOSE: 135 MG, FREQUENCY TIME 1 TOTAL
     Route: 041
     Dates: start: 20210630
  8. CYTARABINE [Suspect]
     Active Substance: CYTARABINE
     Indication: Hodgkin^s disease
     Dosage: UNIT DOSE: 4000MG, FREQUENCY TIME 1 TOTAL
     Route: 041
     Dates: start: 20210722
  9. CYTARABINE [Suspect]
     Active Substance: CYTARABINE
     Dosage: UNIT DOSE: 4000 MG, FREQUENCY TIME 1 TOTAL
     Route: 041
     Dates: start: 20210812
  10. CYTARABINE [Suspect]
     Active Substance: CYTARABINE
     Dosage: UNIT DOSE: 3900 MG, FREQUENCY TIME 1 TOTAL
     Route: 041
     Dates: start: 20210630
  11. BACTRIM [Concomitant]
     Active Substance: SULFAMETHOXAZOLE\TRIMETHOPRIM
  12. PANTOPRAZOLE [Concomitant]
     Active Substance: PANTOPRAZOLE
  13. EMEND [Concomitant]
     Active Substance: APREPITANT
  14. FILGRASTIM [Concomitant]
     Active Substance: FILGRASTIM
  15. OLANZAPINE [Concomitant]
     Active Substance: OLANZAPINE
  16. APIXABAN [Concomitant]
     Active Substance: APIXABAN
  17. VALACYCLOVIR HYDROCHLORIDE [Concomitant]
     Active Substance: VALACYCLOVIR HYDROCHLORIDE
  18. MONTELUKAST SODIUM [Concomitant]
     Active Substance: MONTELUKAST SODIUM
  19. ONDANSETRON [Concomitant]
     Active Substance: ONDANSETRON
  20. POLYETHYLENE GLYCOL 4000 [Concomitant]
     Active Substance: POLYETHYLENE GLYCOL 4000
  21. PRIMPERAN [Concomitant]
     Active Substance: METOCLOPRAMIDE HYDROCHLORIDE
  22. BILASTINE [Concomitant]
     Active Substance: BILASTINE
  23. TRAMADOL HYDROCHLORIDE [Concomitant]
     Active Substance: TRAMADOL HYDROCHLORIDE
     Dosage: CHLORHYDRATE DE TRAMADOL

REACTIONS (1)
  - Bicytopenia [Recovering/Resolving]

NARRATIVE: CASE EVENT DATE: 20210826
